FAERS Safety Report 16132152 (Version 3)
Quarter: 2019Q1

REPORT INFORMATION
  Report Type: Spontaneous
  Country: FR (occurrence: FR)
  Receive Date: 20190329
  Receipt Date: 20190330
  Transmission Date: 20190418
  Serious: Yes (Other)
  Sender: FDA-Public Use
  Company Number: FR-ACCORD-116180

PATIENT
  Age: 4 Year
  Sex: Female

DRUGS (3)
  1. HYDROXYCHLOROQUINE [Suspect]
     Active Substance: HYDROXYCHLOROQUINE
     Indication: PULMONARY HAEMOSIDEROSIS
     Dosage: UNK
     Route: 065
  2. CYCLOPHOSPHAMIDE/CYCLOPHOSPHAMIDE MONOHYDRATE [Suspect]
     Active Substance: CYCLOPHOSPHAMIDE
     Indication: PULMONARY HAEMOSIDEROSIS
     Route: 065
  3. MYCOPHENOLIC ACID. [Suspect]
     Active Substance: MYCOPHENOLIC ACID
     Indication: PULMONARY HAEMOSIDEROSIS
     Route: 065

REACTIONS (7)
  - Pulmonary haemosiderosis [Unknown]
  - Dyspnoea [Unknown]
  - Antibody test positive [None]
  - Disease recurrence [Unknown]
  - Haemoptysis [Unknown]
  - Product use issue [Unknown]
  - Off label use [Unknown]
